FAERS Safety Report 5697944-X (Version None)
Quarter: 2008Q2

REPORT INFORMATION
  Report Type: 
  Country: None (occurrence: None)
  Receive Date: 20080404
  Receipt Date: 20080404
  Transmission Date: 20081010
  Serious: Yes (Hospitalization)
  Sender: FDA-Public Use
  Company Number: None

PATIENT
  Sex: Male
  Weight: 118.6 kg

DRUGS (13)
  1. IRINOTECAN HCL [Suspect]
     Indication: COLON CANCER METASTATIC
     Dosage: 432 MG IV
     Route: 042
     Dates: start: 20080117, end: 20080317
  2. IRINOTECAN HCL [Suspect]
  3. CETUXIMAB [Suspect]
     Indication: COLON CANCER METASTATIC
     Dosage: 1200 MG IV
     Route: 042
     Dates: start: 20080117, end: 20080317
  4. ASPIRIN [Concomitant]
  5. COLACE [Concomitant]
  6. LASIX [Concomitant]
  7. GLIPIZIDE [Concomitant]
  8. HYDRALAZINE HCL [Concomitant]
  9. LIPITOR [Concomitant]
  10. METFORMIN HCL [Concomitant]
  11. CLINDAMYACIN [Concomitant]
  12. COUMADIN [Concomitant]
  13. LOVENOX [Concomitant]

REACTIONS (4)
  - ATRIAL FIBRILLATION [None]
  - CONDITION AGGRAVATED [None]
  - DYSPNOEA [None]
  - TACHYCARDIA [None]
